FAERS Safety Report 25757228 (Version 1)
Quarter: 2025Q3

REPORT INFORMATION
  Report Type: Report from Study
  Country: US (occurrence: US)
  Receive Date: 20250903
  Receipt Date: 20250903
  Transmission Date: 20251021
  Serious: Yes (Other)
  Sender: ABBVIE
  Company Number: US-ABBVIE-6442319

PATIENT
  Sex: Female

DRUGS (1)
  1. HUMIRA [Suspect]
     Active Substance: ADALIMUMAB
     Indication: Product used for unknown indication
     Route: 058
     Dates: start: 20220714, end: 202504

REACTIONS (4)
  - Blindness unilateral [Unknown]
  - Uveitis [Unknown]
  - Arthralgia [Unknown]
  - Symptom recurrence [Unknown]

NARRATIVE: CASE EVENT DATE: 20250601
